FAERS Safety Report 8530536-3 (Version None)
Quarter: 2012Q2

REPORT INFORMATION
  Report Type: 
  Country: None (occurrence: None)
  Receive Date: 20120627
  Receipt Date: 20120620
  Transmission Date: 20120825
  Serious: Yes (Hospitalization)
  Sender: FDA-Public Use
  Company Number: 2010024240

PATIENT

DRUGS (6)
  1. SANDOGLOBULIN [Suspect]
     Indication: CAPILLARY LEAK SYNDROME
     Dosage: 72 G, 66 G INTRAVENOUS
     Route: 042
     Dates: start: 20100426, end: 20100427
  2. SANDOGLOBULIN [Suspect]
     Indication: CAPILLARY LEAK SYNDROME
     Dosage: 72 G, 66 G INTRAVENOUS
     Route: 042
     Dates: start: 20100628, end: 20100628
  3. POLYETHYLENE GLYCOL [Concomitant]
  4. CRESTOR [Concomitant]
  5. TRAMADOL HYDROHLORIDE [Concomitant]
  6. CLONAZEPAM [Concomitant]

REACTIONS (7)
  - DISEASE RECURRENCE [None]
  - ECZEMA [None]
  - DYSHIDROSIS [None]
  - ECZEMA VESICULAR [None]
  - OFF LABEL USE [None]
  - RASH PRURITIC [None]
  - SKIN FISSURES [None]
